FAERS Safety Report 6039706-X (Version None)
Quarter: 2009Q1

REPORT INFORMATION
  Report Type: 
  Country: None (occurrence: None)
  Receive Date: 20090116
  Receipt Date: 20090107
  Transmission Date: 20090719
  Serious: Yes (Other)
  Sender: FDA-Public Use
  Company Number: PHEH2009US00561

PATIENT
  Age: 46 Year
  Sex: Female

DRUGS (2)
  1. ZOMETA [Suspect]
     Indication: BREAST CANCER
     Dosage: 4 MG, QMO
     Route: 042
     Dates: start: 19981001, end: 20041001
  2. TAXOTERE [Concomitant]

REACTIONS (3)
  - BONE DISORDER [None]
  - DENTAL FISTULA [None]
  - INFECTION [None]
